FAERS Safety Report 5516981-9 (Version None)
Quarter: 2007Q4

REPORT INFORMATION
  Report Type: 
  Country: None (occurrence: None)
  Receive Date: 20071109
  Receipt Date: 20071029
  Transmission Date: 20080405
  Serious: Yes (Hospitalization, Other)
  Sender: FDA-Public Use
  Company Number: 2005P1000478

PATIENT
  Age: 72 Year
  Sex: Female
  Weight: 85 kg

DRUGS (7)
  1. RETEPLASE (RETEPLASE) [Suspect]
     Indication: ACUTE MYOCARDIAL INFARCTION
     Dosage: 5 IU; X2; IV
     Route: 042
     Dates: start: 20051006, end: 20051006
  2. ABCIXIMAB (ABCIXIMAB) [Suspect]
     Indication: ACUTE MYOCARDIAL INFARCTION
     Dosage: 10.6 ML; X1; IV; 4.0 ML; QH; IV
     Route: 042
     Dates: start: 20051006, end: 20051006
  3. ABCIXIMAB (ABCIXIMAB) [Suspect]
     Indication: ACUTE MYOCARDIAL INFARCTION
     Dosage: 10.6 ML; X1; IV; 4.0 ML; QH; IV
     Route: 042
     Dates: start: 20051006
  4. HEPARIN [Concomitant]
  5. FUROSEMIDE [Concomitant]
  6. AMOXICILLIN + CLAVULANATE POTASSIUM [Concomitant]
  7. GENTAMICIN [Concomitant]

REACTIONS (11)
  - ATRIAL FIBRILLATION [None]
  - CARDIAC FAILURE [None]
  - CARDIAC FAILURE CONGESTIVE [None]
  - CORONARY ARTERY STENOSIS [None]
  - DUODENAL ULCER [None]
  - EROSIVE OESOPHAGITIS [None]
  - GASTRODUODENITIS [None]
  - GASTROINTESTINAL HAEMORRHAGE [None]
  - HYPOTENSION [None]
  - PNEUMONIA [None]
  - PULMONARY OEDEMA [None]
